FAERS Safety Report 7653023-3 (Version None)
Quarter: 2011Q3

REPORT INFORMATION
  Report Type: 
  Country: None (occurrence: None)
  Receive Date: 20110803
  Receipt Date: 20110729
  Transmission Date: 20111222
  Serious: Yes (Other)
  Sender: FDA-Public Use
  Company Number: IT-ROCHE-792084

PATIENT
  Sex: Female

DRUGS (6)
  1. NAVELBINE [Suspect]
     Dosage: FREQ: CYCLIC.
     Route: 042
     Dates: end: 20110531
  2. DEXAMETHASONE [Concomitant]
     Indication: ANTIEMETIC SUPPORTIVE CARE
     Dosage: DRUG NAME REPORTED AS: DESAMETASONE FOSFATO HOSPIRA.
     Route: 042
     Dates: start: 20110412, end: 20110607
  3. HERCEPTIN [Suspect]
     Dosage: FREQ: CYCLIC.
     Route: 042
     Dates: end: 20110607
  4. NAVELBINE [Suspect]
     Dosage: FREQ: CYCLIC.
     Route: 042
     Dates: start: 20110419
  5. HERCEPTIN [Suspect]
     Dosage: FREQ: CYCLIC.
     Route: 042
     Dates: start: 20110412
  6. KYTRIL [Concomitant]
     Indication: ANTIEMETIC SUPPORTIVE CARE
     Route: 042
     Dates: start: 20110412, end: 20110607

REACTIONS (1)
  - HYPERTRANSAMINASAEMIA [None]
